FAERS Safety Report 9877938 (Version 2)
Quarter: 2014Q2

REPORT INFORMATION
  Report Type: Spontaneous
  Country: US (occurrence: None)
  Receive Date: 20140204
  Receipt Date: 20140514
  Transmission Date: 20141212
  Serious: Yes (Other)
  Sender: FDA-Public Use
  Company Number: 2014-US-000849

PATIENT
  Age: 61 Year
  Sex: Female

DRUGS (1)
  1. XYREM [Suspect]
     Indication: PRODUCT USED FOR UNKNOWN INDICATION
     Route: 048
     Dates: start: 200509

REACTIONS (2)
  - Knee arthroplasty [None]
  - Blood pressure abnormal [None]
